FAERS Safety Report 5146100-2 (Version None)
Quarter: 2006Q4

REPORT INFORMATION
  Report Type: 
  Country: None (occurrence: None)
  Receive Date: 20061108
  Receipt Date: 20051123
  Transmission Date: 20070319
  Serious: Yes (Hospitalization, Other)
  Sender: FDA-Public Use
  Company Number: FR-AVENTIS-200513851FR

PATIENT
  Age: 60 Year
  Sex: Male
  Weight: 65 kg

DRUGS (5)
  1. ARAVA [Suspect]
     Indication: RHEUMATOID ARTHRITIS
     Route: 048
     Dates: start: 20050515, end: 20050722
  2. SOLUPRED                           /00016201/ [Concomitant]
     Indication: RHEUMATOID ARTHRITIS
     Route: 048
     Dates: start: 19990101
  3. OMEPRAZOLE [Concomitant]
     Indication: PROPHYLAXIS
     Route: 048
     Dates: start: 19990101
  4. DAFALGAN [Concomitant]
     Indication: ARTHRALGIA
     Route: 048
     Dates: start: 19990101
  5. OROCAL VITAMINE D3 [Concomitant]
     Indication: BLOOD CALCIUM DECREASED
     Route: 048
     Dates: start: 19990101

REACTIONS (18)
  - ALANINE AMINOTRANSFERASE INCREASED [None]
  - ANAEMIA [None]
  - ASPARTATE AMINOTRANSFERASE INCREASED [None]
  - ASTHENIA [None]
  - BLOOD LACTATE DEHYDROGENASE INCREASED [None]
  - EMPHYSEMA [None]
  - HYPERGAMMAGLOBULINAEMIA BENIGN MONOCLONAL [None]
  - ICHTHYOSIS [None]
  - MUSCLE HYPERTROPHY [None]
  - OEDEMA PERIPHERAL [None]
  - PITTING OEDEMA [None]
  - POLYMYOSITIS [None]
  - PSORIASIS [None]
  - RASH [None]
  - SCAN BONE MARROW ABNORMAL [None]
  - SKIN LESION [None]
  - VASCULITIS [None]
  - WEIGHT DECREASED [None]
